FAERS Safety Report 8374512-2 (Version None)
Quarter: 2012Q2

REPORT INFORMATION
  Report Type: 
  Country: None (occurrence: None)
  Receive Date: 20120521
  Receipt Date: 20120515
  Transmission Date: 20120825
  Serious: Yes (Disabling, Other)
  Sender: FDA-Public Use
  Company Number: US-CELGENEUS-163-21880-12042385

PATIENT
  Sex: Male

DRUGS (13)
  1. FINASTERIDE [Concomitant]
     Dosage: 5 MILLIGRAM
     Route: 048
  2. CALCIUM 500 + D [Concomitant]
     Dosage: 500-400 MG
     Route: 048
  3. LEVETIRACETAM [Concomitant]
     Dosage: 1000 MILLIGRAM
     Route: 048
  4. DIOVAN [Concomitant]
     Dosage: 40 MILLIGRAM
     Route: 048
  5. REVLIMID [Suspect]
     Indication: MULTIPLE MYELOMA
     Dosage: 25 MILLIGRAM
     Route: 048
     Dates: start: 20111201
  6. DIGOXIN [Concomitant]
     Dosage: .25 MILLIGRAM
     Route: 048
  7. ATENOLOL [Concomitant]
     Dosage: 25 MILLIGRAM
     Route: 048
  8. COLACE [Concomitant]
     Dosage: 100 MILLIGRAM
     Route: 048
  9. SIMVASTATIN [Concomitant]
     Dosage: 40 MILLIGRAM
     Route: 048
  10. MECLIZINE HCL [Concomitant]
     Indication: DIZZINESS
     Dosage: 25 MILLIGRAM
     Route: 048
  11. EQ OMEPRAZOLE [Concomitant]
     Dosage: 20 MILLIGRAM
     Route: 048
  12. COUMADIN [Concomitant]
     Dosage: 10 MILLIGRAM
     Route: 048
  13. DEXAMETHASONE [Concomitant]
     Dosage: 4 MILLIGRAM
     Route: 048

REACTIONS (2)
  - ANEURYSM [None]
  - BLINDNESS [None]
